FAERS Safety Report 6906975-0 (Version None)
Quarter: 2010Q3

REPORT INFORMATION
  Report Type: 
  Country: None (occurrence: None)
  Receive Date: 20100804
  Receipt Date: 20071024
  Transmission Date: 20110219
  Serious: Yes (Other)
  Sender: FDA-Public Use
  Company Number: US-PFIZER INC-2007087200

PATIENT
  Sex: Female
  Weight: 29.03 kg

DRUGS (2)
  1. NARDIL [Suspect]
     Indication: ANXIETY
     Dates: start: 20071012
  2. NARDIL [Suspect]
     Indication: DEPRESSION

REACTIONS (2)
  - BLOOD PRESSURE INCREASED [None]
  - FOOD INTERACTION [None]
